FAERS Safety Report 8201585-X (Version None)
Quarter: 2012Q1

REPORT INFORMATION
  Report Type: 
  Country: None (occurrence: None)
  Receive Date: 20120312
  Receipt Date: 20120301
  Transmission Date: 20120608
  Serious: Yes (Death, Life-Threatening, Hospitalization, Other)
  Sender: FDA-Public Use
  Company Number: US-UCBSA-048163

PATIENT
  Age: 48 Year
  Sex: Female
  Weight: 53.5 kg

DRUGS (21)
  1. XANAX [Concomitant]
     Indication: ANXIETY
     Dosage: FREQUENCY: BED TIME/AS NEEDED
     Route: 048
     Dates: start: 20081031
  2. ZOFRAN ODT [Concomitant]
     Indication: NAUSEA
     Dosage: THREE TIMES AS NEEDED
     Route: 048
     Dates: start: 20110401
  3. PRIMIDONE [Concomitant]
     Indication: TREMOR
     Route: 048
     Dates: start: 20110801
  4. MIRALAX [Concomitant]
     Indication: CONSTIPATION
     Route: 048
     Dates: start: 20110901
  5. NADOLOL [Concomitant]
     Indication: TREMOR
     Route: 048
     Dates: start: 20110801
  6. PROZAC [Concomitant]
     Indication: DEPRESSION
     Route: 048
     Dates: start: 20100901
  7. FIORICET [Concomitant]
     Indication: MIGRAINE
     Dosage: 50-325-40, THREE AS NEEDED
     Route: 048
     Dates: start: 20110201
  8. NADOLOL [Concomitant]
     Indication: MIGRAINE
     Route: 048
     Dates: start: 20110801
  9. CERTOLIZUMAB PEGOL [Suspect]
     Indication: RHEUMATOID ARTHRITIS
     Dosage: NO OF DOSES RECEIVED: 7
     Route: 058
     Dates: start: 20110915, end: 20111206
  10. TRAZODONE HCL [Concomitant]
     Indication: DEPRESSION
     Dosage: FREQUENCY: BED TIME
     Route: 048
     Dates: start: 20070521
  11. NASONEX [Concomitant]
     Indication: HYPERSENSITIVITY
     Dosage: ROUTTE: NASAL INHALATION
     Route: 045
     Dates: start: 20071210
  12. TYLENOL W/ CODEINE [Concomitant]
     Indication: PAIN
     Dosage: 300-30 MG
     Route: 048
     Dates: start: 20110801
  13. PRILOSEC OTC [Concomitant]
     Indication: GASTROOESOPHAGEAL REFLUX DISEASE
     Route: 048
     Dates: start: 20110801
  14. PROCHLORPERAZINE [Concomitant]
     Indication: NAUSEA
     Route: 048
     Dates: start: 20110901
  15. NADOLOL [Concomitant]
     Indication: VERTIGO
     Route: 048
     Dates: start: 20110801
  16. CYCLOBENZAPRINE HCL [Concomitant]
     Indication: MUSCLE TIGHTNESS
     Dosage: 5-10 MG
     Route: 048
     Dates: start: 20111101
  17. WELLBUTRIN XL [Concomitant]
     Indication: DEPRESSION
     Route: 048
     Dates: start: 20070521
  18. PLAQUENIL [Concomitant]
     Indication: RHEUMATOID ARTHRITIS
     Route: 048
     Dates: start: 20070521
  19. BENEFIBER [Concomitant]
     Indication: CONSTIPATION
     Route: 048
     Dates: start: 20110901
  20. MEDROL [Concomitant]
     Indication: SINUSITIS
     Dosage: DEESCLATAING DOSE
     Route: 054
     Dates: start: 20111101
  21. GUAIFENESIN [Concomitant]
     Indication: RESPIRATORY TRACT CONGESTION
     Route: 048
     Dates: start: 20110901

REACTIONS (7)
  - SEPTIC SHOCK [None]
  - PNEUMONIA [None]
  - RESPIRATORY FAILURE [None]
  - MYOPATHY [None]
  - SINUSITIS [None]
  - RENAL FAILURE ACUTE [None]
  - HEPATIC ENZYME INCREASED [None]
